FAERS Safety Report 25850988 (Version 1)
Quarter: 2025Q3

REPORT INFORMATION
  Report Type: Report from Study
  Country: US (occurrence: US)
  Receive Date: 20250926
  Receipt Date: 20250926
  Transmission Date: 20251020
  Serious: Yes (Hospitalization, Other)
  Sender: ABBVIE
  Company Number: US-ABBVIE-6394957

PATIENT
  Sex: Female

DRUGS (1)
  1. HUMIRA [Suspect]
     Active Substance: ADALIMUMAB
     Indication: Rheumatoid arthritis
     Route: 058

REACTIONS (7)
  - Road traffic accident [Recovered/Resolved]
  - Pneumonia [Unknown]
  - Orthopaedic procedure [Unknown]
  - Pain [Unknown]
  - Musculoskeletal stiffness [Unknown]
  - Product odour abnormal [Unknown]
  - Pulmonary oedema [Unknown]
